FAERS Safety Report 8498196-8 (Version None)
Quarter: 2012Q3

REPORT INFORMATION
  Report Type: 
  Country: None (occurrence: None)
  Receive Date: 20120709
  Receipt Date: 20120620
  Transmission Date: 20120928
  Serious: No
  Sender: FDA-Public Use
  Company Number: US-AMGEN-USASP2012038286

PATIENT
  Age: 61 Year
  Sex: Female

DRUGS (14)
  1. NABUMETONE [Concomitant]
     Dosage: UNK MG, UNK
  2. CALCIUM MAGNESIUM [Concomitant]
     Dosage: UNK MG, UNK
  3. ENBREL [Suspect]
     Indication: RHEUMATOID ARTHRITIS
     Dosage: 50 MG, QWK
     Dates: start: 20111001
  4. GINKO BILOBA [Concomitant]
     Dosage: UNK MG, UNK
  5. SULFASALAZINE [Concomitant]
     Dosage: UNK MG, UNK
  6. ATACAND HCT [Concomitant]
     Dosage: UNK
  7. MULTI-VITAMINS [Concomitant]
     Dosage: UNK
  8. LIPITOR [Concomitant]
     Dosage: UNK MG, UNK
  9. OMEPRAZOLE [Concomitant]
     Dosage: UNK MG, UNK
  10. HYDROXYCHLOROQUINE SULFATE [Concomitant]
     Dosage: UNK MG, UNK
  11. VITAMIN C                          /00008001/ [Concomitant]
     Dosage: 1 MG, UNK
  12. TRAMADOL HCL [Concomitant]
     Dosage: UNK MG, UNK
  13. FISH OIL [Concomitant]
     Dosage: UNK MG, UNK
  14. FOLIC ACID [Concomitant]
     Dosage: UNK MUG, UNK

REACTIONS (2)
  - ALOPECIA [None]
  - DYSGEUSIA [None]
